FAERS Safety Report 16879287 (Version 2)
Quarter: 2019Q4

REPORT INFORMATION
  Report Type: Spontaneous
  Country: CA (occurrence: CA)
  Receive Date: 20191003
  Receipt Date: 20191008
  Transmission Date: 20200122
  Serious: Yes (Hospitalization, Other)
  Sender: FDA-Public Use
  Company Number: CA-SAMSUNG BIOEPIS-SB-2019-28745

PATIENT
  Age: 19 Year
  Sex: Female

DRUGS (3)
  1. VENTOLIN [Concomitant]
     Active Substance: ALBUTEROL SULFATE
     Indication: PRODUCT USED FOR UNKNOWN INDICATION
     Dosage: UNKNOWN, AS REQUIRED
     Route: 065
  2. INFLIXIMAB [Suspect]
     Active Substance: INFLIXIMAB
     Indication: CROHN^S DISEASE
     Dosage: UNKNOWN
     Route: 042
  3. CELEXA [Concomitant]
     Active Substance: CITALOPRAM HYDROBROMIDE
     Indication: PRODUCT USED FOR UNKNOWN INDICATION
     Route: 048

REACTIONS (6)
  - Rectal abscess [Not Recovered/Not Resolved]
  - Condition aggravated [Not Recovered/Not Resolved]
  - Aphthous ulcer [Not Recovered/Not Resolved]
  - Decreased appetite [Not Recovered/Not Resolved]
  - Fatigue [Not Recovered/Not Resolved]
  - Off label use [Not Recovered/Not Resolved]
